FAERS Safety Report 9281566 (Version 1)
Quarter: 2013Q2

REPORT INFORMATION
  Report Type: Spontaneous
  Country: DE (occurrence: DE)
  Receive Date: 20130509
  Receipt Date: 20130509
  Transmission Date: 20140414
  Serious: Yes (Life-Threatening, Hospitalization, Other)
  Sender: FDA-Public Use
  Company Number: DE-009507513-2012SP020204

PATIENT
  Age: 53 Year
  Sex: Male

DRUGS (10)
  1. VICTRELIS [Suspect]
     Indication: CHRONIC HEPATITIS C
     Dosage: 800 MG, TID
     Route: 048
     Dates: start: 20120220, end: 20120412
  2. PEGASYS [Suspect]
     Indication: CHRONIC HEPATITIS C
     Dosage: 180 MICROGRAM, QW
     Route: 058
     Dates: start: 20120123, end: 20120412
  3. RIBAVIRIN [Suspect]
     Indication: CHRONIC HEPATITIS C
     Dosage: 800 MG, QD
     Route: 048
     Dates: start: 20120123
  4. RIBAVIRIN [Suspect]
     Dosage: 1700 MG, QD
     Route: 048
     Dates: start: 20120206
  5. RIBAVIRIN [Suspect]
     Dosage: 800 MG, QD
     Route: 048
     Dates: start: 20120227, end: 20120412
  6. L-POLAMIDON [Concomitant]
     Indication: DRUG DEPENDENCE
     Dosage: 55 MG, QD
     Route: 048
  7. OMEPRAZOLE [Concomitant]
     Dosage: 20 MG, QD
     Route: 048
  8. REKAWAN [Concomitant]
     Indication: HYPOKALAEMIA
     Dosage: 1 DF, QD
     Route: 048
  9. DEKRISTOL [Concomitant]
     Indication: VITAMIN D DEFICIENCY
     Dosage: 20000 IU, QD
     Route: 048
  10. SUMATRIPTAN SUCCINATE [Concomitant]
     Indication: MIGRAINE
     Dosage: 50 MG, AS REQUIRED
     Route: 048

REACTIONS (6)
  - Bone marrow failure [Recovered/Resolved]
  - Agranulocytosis [Unknown]
  - Staphylococcal bacteraemia [Unknown]
  - Cellulitis [Recovered/Resolved]
  - Neutropenia [Recovered/Resolved]
  - Cellulitis [Recovered/Resolved]
